FAERS Safety Report 19389526 (Version 2)
Quarter: 2021Q3

REPORT INFORMATION
  Report Type: Spontaneous
  Country: US (occurrence: US)
  Receive Date: 20210608
  Receipt Date: 20210820
  Transmission Date: 20211014
  Serious: Yes (Hospitalization, Other)
  Sender: FDA-Public Use
  Company Number: US-PFIZER INC-2021275537

PATIENT
  Age: 67 Year
  Sex: Female
  Weight: 75.28 kg

DRUGS (7)
  1. KEYTRUDA [Concomitant]
     Active Substance: PEMBROLIZUMAB
     Dosage: 100 MG
  2. CALCIUM + D3 [CALCIUM;COLECALCIFEROL] [Concomitant]
     Active Substance: CALCIUM\CHOLECALCIFEROL
     Dosage: UNK (600 MG?12.5 )
  3. AMLODIPINE BESYLATE. [Concomitant]
     Active Substance: AMLODIPINE BESYLATE
     Dosage: 10 MG
  4. INLYTA [Suspect]
     Active Substance: AXITINIB
     Indication: RENAL CELL CARCINOMA
     Dosage: 5 MG, 2X/DAY
     Route: 048
     Dates: start: 20210219, end: 2021
  5. LOSARTAN POTASSIUM. [Concomitant]
     Active Substance: LOSARTAN POTASSIUM
     Dosage: 100 MG
  6. OXYCODONE HYDROCHLORIDE. [Concomitant]
     Active Substance: OXYCODONE HYDROCHLORIDE
     Dosage: 15 MG
  7. ELIQUIS [Concomitant]
     Active Substance: APIXABAN
     Dosage: 2.5 MG

REACTIONS (15)
  - Feeding disorder [Recovered/Resolved]
  - Weight decreased [Recovered/Resolved]
  - Abdominal pain upper [Unknown]
  - Mouth swelling [Recovered/Resolved]
  - Oral pain [Recovered/Resolved]
  - Vomiting [Recovered/Resolved]
  - Lip swelling [Recovered/Resolved]
  - Blood calcium decreased [Recovered/Resolved]
  - Bell^s palsy [Recovered/Resolved]
  - Vertigo [Recovered/Resolved]
  - Dehydration [Recovered/Resolved]
  - Asthenia [Recovered/Resolved]
  - Fatigue [Recovered/Resolved]
  - Blood potassium decreased [Recovered/Resolved]
  - Epistaxis [Recovered/Resolved]

NARRATIVE: CASE EVENT DATE: 2021
